FAERS Safety Report 22794935 (Version 13)
Quarter: 2025Q4

REPORT INFORMATION
  Report Type: Spontaneous
  Country: US (occurrence: US)
  Receive Date: 20230807
  Receipt Date: 20251118
  Transmission Date: 20260117
  Serious: Yes (Other)
  Sender: PFIZER
  Company Number: US-PFIZER INC-202300267836

PATIENT
  Age: 81 Year
  Sex: Female
  Weight: 45.351 kg

DRUGS (5)
  1. IBRANCE [Suspect]
     Active Substance: PALBOCICLIB
     Indication: Breast cancer metastatic
     Dosage: 125 MG
     Dates: start: 20230628, end: 2023
  2. IBRANCE [Suspect]
     Active Substance: PALBOCICLIB
     Dosage: 100 MG, CYCLIC (21 DAYS TAKING 1 TABLET EVERY DAY AND THEN 7 DAYS OFF)
     Route: 048
     Dates: start: 20230802
  3. IBRANCE [Suspect]
     Active Substance: PALBOCICLIB
     Dosage: 75 MG
  4. LETROZOLE [Concomitant]
     Active Substance: LETROZOLE
     Dosage: 2.5 MG
     Dates: start: 20230628
  5. KETOCONAZOLE [Concomitant]
     Active Substance: KETOCONAZOLE
     Indication: Seborrhoea
     Dosage: 2 %

REACTIONS (15)
  - Malignant neoplasm progression [Unknown]
  - Breast cancer metastatic [Unknown]
  - Metastases to liver [Unknown]
  - Metastases to lung [Unknown]
  - Metastases to kidney [Unknown]
  - Neutrophil count decreased [Recovered/Resolved]
  - Red blood cell count decreased [Recovered/Resolved]
  - White blood cell count decreased [Recovered/Resolved]
  - Illness [Recovered/Resolved]
  - Immune system disorder [Unknown]
  - Full blood count decreased [Unknown]
  - Constipation [Unknown]
  - Cough [Unknown]
  - Alopecia [Unknown]
  - Nasopharyngitis [Unknown]

NARRATIVE: CASE EVENT DATE: 20230101
